FAERS Safety Report 6456328-7 (Version None)
Quarter: 2009Q4

REPORT INFORMATION
  Report Type: 
  Country: None (occurrence: None)
  Receive Date: 20091125
  Receipt Date: 20091118
  Transmission Date: 20100525
  Serious: Yes (Hospitalization)
  Sender: FDA-Public Use
  Company Number: US-AMGEN-QUU369362

PATIENT
  Sex: Female
  Weight: 2.7 kg

DRUGS (1)
  1. ENBREL [Suspect]
     Indication: PSORIASIS
     Route: 064
     Dates: start: 20050101

REACTIONS (1)
  - NEONATAL RESPIRATORY DISTRESS SYNDROME [None]
